FAERS Safety Report 7930311-4 (Version None)
Quarter: 2011Q4

REPORT INFORMATION
  Report Type: 
  Country: None (occurrence: None)
  Receive Date: 20111121
  Receipt Date: 20111107
  Transmission Date: 20120403
  Serious: Yes (Life-Threatening, Hospitalization, Other)
  Sender: FDA-Public Use
  Company Number: US-ROCHE-1011669

PATIENT

DRUGS (5)
  1. HERCEPTIN [Suspect]
     Indication: BREAST CANCER METASTATIC
     Route: 042
     Dates: start: 20050823
  2. IXABEPILONE [Suspect]
     Indication: BREAST CANCER METASTATIC
     Route: 042
     Dates: start: 20050823
  3. HERCEPTIN [Suspect]
     Route: 042
  4. CARBOPLATIN [Suspect]
     Indication: BREAST CANCER METASTATIC
     Route: 042
     Dates: start: 20050823
  5. HERCEPTIN [Suspect]
     Route: 042

REACTIONS (4)
  - ABDOMINAL PAIN [None]
  - EMBOLISM [None]
  - NAUSEA [None]
  - URINARY TRACT INFECTION [None]
